FAERS Safety Report 4766244-4 (Version None)
Quarter: 2005Q3

REPORT INFORMATION
  Report Type: 
  Country: None (occurrence: None)
  Receive Date: 20050912
  Receipt Date: 20050609
  Transmission Date: 20060218
  Serious: Yes (Hospitalization, Disabling)
  Sender: FDA-Public Use
  Company Number: US-MERCK-0506USA01836

PATIENT
  Sex: Female
  Weight: 77 kg

DRUGS (6)
  1. VIOXX [Suspect]
     Indication: ARTHRITIS
     Route: 048
     Dates: start: 20010910, end: 20021230
  2. PROZAC [Concomitant]
     Indication: EMOTIONAL DISORDER
     Route: 065
     Dates: start: 19920101
  3. PROZAC [Concomitant]
     Route: 065
  4. LOTENSIN [Concomitant]
     Route: 065
     Dates: start: 19910101
  5. LOPRESSOR [Concomitant]
     Indication: HYPERTENSION
     Route: 065
     Dates: start: 19890101
  6. LORTAB [Concomitant]
     Indication: BACK PAIN
     Route: 065
     Dates: start: 19980101

REACTIONS (6)
  - CARDIAC DISORDER [None]
  - CARDIAC FAILURE CONGESTIVE [None]
  - CORONARY ARTERY DISEASE [None]
  - DRUG HYPERSENSITIVITY [None]
  - GASTROOESOPHAGEAL REFLUX DISEASE [None]
  - OBESITY [None]
